FAERS Safety Report 12148640 (Version 1)
Quarter: 2016Q1

REPORT INFORMATION
  Report Type: Spontaneous
  Country: US (occurrence: US)
  Receive Date: 20160304
  Receipt Date: 20160304
  Transmission Date: 20160526
  Serious: No
  Sender: FDA-Public Use
  Company Number: ALCN2016US001687

PATIENT
  Sex: Female

DRUGS (1)
  1. SYSTANE (POLYETHYLENE GLYCOL 400\PROPYLENE GLYCOL) [Suspect]
     Active Substance: POLYETHYLENE GLYCOL 400\PROPYLENE GLYCOL
     Indication: PRODUCT USED FOR UNKNOWN INDICATION
     Dosage: UNK GTT, UNK
     Route: 047
     Dates: start: 20160226

REACTIONS (1)
  - Ocular hyperaemia [Unknown]
